FAERS Safety Report 13986127 (Version 2)
Quarter: 2017Q4

REPORT INFORMATION
  Report Type: Report from Study
  Country: BE (occurrence: BE)
  Receive Date: 20170919
  Receipt Date: 20171031
  Transmission Date: 20180321
  Serious: Yes (Other)
  Sender: FDA-Public Use
  Company Number: BE-TAKEDA-2017MPI007994

PATIENT
  Sex: Male

DRUGS (1)
  1. VELCADE [Suspect]
     Active Substance: BORTEZOMIB
     Indication: PRODUCT USED FOR UNKNOWN INDICATION
     Dosage: 1.5 MG, 1/WEEK
     Route: 058
     Dates: start: 20170606

REACTIONS (7)
  - Spinal pain [Unknown]
  - Skin reaction [Recovering/Resolving]
  - Eye haemorrhage [Unknown]
  - Tooth disorder [Unknown]
  - Wound [Unknown]
  - Blister [Unknown]
  - Ear pain [Unknown]

NARRATIVE: CASE EVENT DATE: 201709
